FAERS Safety Report 4369995-9 (Version None)
Quarter: 2004Q2

REPORT INFORMATION
  Report Type: 
  Country: None (occurrence: None)
  Receive Date: 20040603
  Receipt Date: 20040528
  Transmission Date: 20050107
  Serious: Yes (Hospitalization, Other)
  Sender: FDA-Public Use
  Company Number: A03200400600

PATIENT
  Age: 48 Year
  Sex: Male
  Weight: 79.5 kg

DRUGS (3)
  1. WELLBUTRIN SR [Suspect]
     Indication: DEPRESSION
     Dosage: 150MG PER DAY
     Route: 048
     Dates: start: 20031020, end: 20031001
  2. AMBIEN [Suspect]
     Indication: INSOMNIA
     Dosage: 5MG SEE DOSAGE TEXT
     Route: 048
     Dates: start: 20031014, end: 20031022
  3. PAROXETINE HYDROCHLORIDE [Concomitant]
     Indication: DRUG USE FOR UNKNOWN INDICATION
     Route: 048
     Dates: start: 20031012, end: 20031015

REACTIONS (1)
  - SUICIDE ATTEMPT [None]
